FAERS Safety Report 6922344-1 (Version None)
Quarter: 2010Q3

REPORT INFORMATION
  Report Type: 
  Country: None (occurrence: None)
  Receive Date: 20100813
  Receipt Date: 20100730
  Transmission Date: 20110219
  Serious: Yes (Hospitalization, Disabling)
  Sender: FDA-Public Use
  Company Number: BR-BAYER-201017409LA

PATIENT
  Age: 46 Year
  Sex: Female

DRUGS (9)
  1. BETAFERON [Suspect]
     Indication: RELAPSING-REMITTING MULTIPLE SCLEROSIS
     Dosage: BETAJECT
     Route: 058
     Dates: start: 20100723
  2. BETAFERON [Suspect]
     Dosage: BETAJECT
     Route: 058
     Dates: start: 20090901, end: 20100701
  3. TEGRETOL [Concomitant]
     Indication: CHOKING
     Dosage: TOTAL DAILY DOSE: 800 MG  UNIT DOSE: 200 MG
     Route: 048
     Dates: start: 20090401
  4. LACTULONA [Concomitant]
     Indication: CONSTIPATION
     Dosage: AS USED: 20 ML
     Route: 048
     Dates: start: 20100501
  5. AMANTADINE HCL [Concomitant]
     Indication: FATIGUE
     Dosage: TOTAL DAILY DOSE: 200 MG  UNIT DOSE: 100 MG
     Route: 048
     Dates: start: 20090101
  6. OMEPRAZOLE [Concomitant]
     Indication: ABDOMINAL PAIN UPPER
     Dosage: TOTAL DAILY DOSE: 20 MG  UNIT DOSE: 20 MG
     Route: 048
     Dates: start: 20100101
  7. DOXAZOSIN [Concomitant]
     Indication: URINARY INCONTINENCE
     Dosage: TOTAL DAILY DOSE: 4 MG  UNIT DOSE: 2 MG
     Route: 048
     Dates: start: 20100601
  8. OXYBUTYNIN [Concomitant]
     Indication: URINARY INCONTINENCE
     Dosage: TOTAL DAILY DOSE: 5 MG  UNIT DOSE: 5 MG
     Route: 048
     Dates: start: 20100601
  9. FLUOXETINE [Concomitant]
     Indication: DEPRESSION
     Dosage: TOTAL DAILY DOSE: 20 MG  UNIT DOSE: 20 MG
     Route: 048
     Dates: start: 20100601

REACTIONS (12)
  - ABASIA [None]
  - BLOOD CHOLESTEROL INCREASED [None]
  - CHOKING [None]
  - DIPLOPIA [None]
  - GAIT DISTURBANCE [None]
  - INJECTION SITE HAEMATOMA [None]
  - INJECTION SITE PAIN [None]
  - MEMORY IMPAIRMENT [None]
  - MOBILITY DECREASED [None]
  - MULTIPLE SCLEROSIS [None]
  - MULTIPLE SCLEROSIS RELAPSE [None]
  - PARAESTHESIA [None]
